FAERS Safety Report 25672367 (Version 6)
Quarter: 2025Q4

REPORT INFORMATION
  Report Type: Report from Study
  Country: US (occurrence: US)
  Receive Date: 20250812
  Receipt Date: 20251222
  Transmission Date: 20260117
  Serious: No
  Sender: SANOFI AVENTIS
  Company Number: US-SA-2025SA232819

PATIENT
  Age: 29 Year
  Sex: Female
  Weight: 125 kg

DRUGS (4)
  1. FABRAZYME [Suspect]
     Active Substance: AGALSIDASE BETA
     Indication: Fabry^s disease
     Dosage: 120 MG (105 MG DOSE USING 35 MG VIAL AND 15 MG DOSE USING 5 MG VIAL), QOW
     Route: 042
     Dates: start: 202008
  2. FABRAZYME [Suspect]
     Active Substance: AGALSIDASE BETA
     Dosage: 210 MG, QOW (195MG AND 15 MG)
     Route: 042
  3. FABRAZYME [Suspect]
     Active Substance: AGALSIDASE BETA
     Dosage: 120 MG, QOW
     Route: 042
  4. EPINEPHRINE [Concomitant]
     Active Substance: EPINEPHRINE

REACTIONS (7)
  - Illness [Unknown]
  - Weight decreased [Unknown]
  - Gastroenteritis viral [Unknown]
  - Weight abnormal [Unknown]
  - Nausea [Unknown]
  - Fatigue [Unknown]
  - Maternal exposure during pregnancy [Unknown]

NARRATIVE: CASE EVENT DATE: 20250101
